FAERS Safety Report 22633218 (Version 1)
Quarter: 2023Q2

REPORT INFORMATION
  Report Type: Spontaneous
  Country: US (occurrence: US)
  Receive Date: 20230623
  Receipt Date: 20230623
  Transmission Date: 20230721
  Serious: No
  Sender: FDA-Public Use
  Company Number: US-009507513-2305USA009773

PATIENT
  Age: 72 Year
  Sex: Female

DRUGS (11)
  1. PRIMAXIN IV [Suspect]
     Active Substance: CILASTATIN SODIUM\IMIPENEM
     Indication: Ulcerative keratitis
     Dosage: UNK
     Route: 047
     Dates: start: 2022
  2. PRIMAXIN IV [Suspect]
     Active Substance: CILASTATIN SODIUM\IMIPENEM
     Indication: Pseudomonas infection
  3. CEFIDEROCOL [Concomitant]
     Active Substance: CEFIDEROCOL
     Indication: Ulcerative keratitis
     Dosage: 2 GRAM, Q8H
     Route: 042
     Dates: start: 2022
  4. CEFIDEROCOL [Concomitant]
     Active Substance: CEFIDEROCOL
     Indication: Pseudomonas infection
  5. POLYMYXIN B;TRIMETHOPRIM [Concomitant]
     Indication: Ulcerative keratitis
     Dosage: UNK; OPTHALMIC SOLUTION
     Route: 047
     Dates: start: 2022
  6. POLYMYXIN B;TRIMETHOPRIM [Concomitant]
     Indication: Pseudomonas infection
  7. LIFITEGRAST [Concomitant]
     Active Substance: LIFITEGRAST
     Indication: Dry eye
     Dosage: UNK
     Dates: start: 2022
  8. VANCOMYCIN [Concomitant]
     Active Substance: VANCOMYCIN
     Indication: Anti-infective therapy
     Dosage: UNK, HOURLY
  9. TOBRAMYCIN [Concomitant]
     Active Substance: TOBRAMYCIN
     Indication: Anti-infective therapy
     Dosage: UNK, HOURLY
  10. DOXYCYCLINE [Concomitant]
     Active Substance: DOXYCYCLINE
     Indication: Anti-infective therapy
     Dosage: 100 MILLIGRAM, TWICE DAILY (BID)
     Route: 048
  11. AVIBACTAM SODIUM\CEFTAZIDIME [Concomitant]
     Active Substance: AVIBACTAM SODIUM\CEFTAZIDIME
     Indication: Anti-infective therapy
     Dosage: UNK
     Route: 042

REACTIONS (2)
  - Product use in unapproved indication [Unknown]
  - Product use issue [Unknown]

NARRATIVE: CASE EVENT DATE: 20220101
